FAERS Safety Report 4791884-6 (Version None)
Quarter: 2005Q4

REPORT INFORMATION
  Report Type: 
  Country: None (occurrence: None)
  Receive Date: 20051005
  Receipt Date: 20050920
  Transmission Date: 20060501
  Serious: Yes (Hospitalization)
  Sender: FDA-Public Use
  Company Number: 2005-0008703

PATIENT
  Age: 49 Year
  Sex: Male

DRUGS (6)
  1. EMTRIVA [Suspect]
     Indication: HIV INFECTION
     Dates: start: 20050509
  2. VIREAD [Suspect]
     Indication: HIV INFECTION
     Dosage: 300 MG, 1 IN 1 D, ORAL
     Route: 048
     Dates: start: 20050509, end: 20050701
  3. KALETRA [Concomitant]
  4. RIMIFON [Concomitant]
  5. PIRILENE (PYRAZINAMIDE) [Concomitant]
  6. ANASATIPINE (RIFABUTIN) [Concomitant]

REACTIONS (7)
  - BACILLUS INFECTION [None]
  - BIOPSY LYMPH GLAND ABNORMAL [None]
  - GLYCOSURIA [None]
  - IMMUNE RECONSTITUTION SYNDROME [None]
  - PROTEINURIA [None]
  - RENAL FAILURE ACUTE [None]
  - RENAL TUBULAR DISORDER [None]
